FAERS Safety Report 9115081 (Version 1)
Quarter: 2013Q1

REPORT INFORMATION
  Report Type: Report from Study
  Country: CA (occurrence: CA)
  Receive Date: 20130208
  Receipt Date: 20130208
  Transmission Date: 20140127
  Serious: Yes (Other)
  Sender: FDA-Public Use
  Company Number: CA-JNJFOC-20130117317

PATIENT
  Age: 31 Year
  Sex: Male
  Weight: 62 kg

DRUGS (1)
  1. REMICADE [Suspect]
     Indication: COLITIS ULCERATIVE
     Dosage: 14 INFUSIONS TILL DATE
     Route: 042
     Dates: start: 20101221, end: 20121018

REACTIONS (1)
  - Chronic myeloid leukaemia [Unknown]
